FAERS Safety Report 8523231-8 (Version None)
Quarter: 2012Q3

REPORT INFORMATION
  Report Type: 
  Country: None (occurrence: None)
  Receive Date: 20120720
  Receipt Date: 20120713
  Transmission Date: 20120928
  Serious: No
  Sender: FDA-Public Use
  Company Number: US-PFIZER INC-2012170519

PATIENT
  Sex: Male

DRUGS (1)
  1. VIAGRA [Suspect]
     Dosage: UNK

REACTIONS (5)
  - SKIN STRIAE [None]
  - LIGAMENT SPRAIN [None]
  - SKIN WRINKLING [None]
  - OEDEMA PERIPHERAL [None]
  - FALL [None]
